FAERS Safety Report 14982356 (Version 1)
Quarter: 2018Q2

REPORT INFORMATION
  Report Type: Spontaneous
  Country: US (occurrence: US)
  Receive Date: 20180517
  Receipt Date: 20180517
  Transmission Date: 20180711
  Serious: No
  Sender: FDA-Public Use
  Company Number: None

PATIENT
  Age: 28 Year
  Sex: Female
  Weight: 87.75 kg

DRUGS (3)
  1. B-12 INJECTIONS WITH LIPOTROPIC [Concomitant]
  2. XULANE BIRTH CONTROL PATCH [Concomitant]
  3. NP THYROID [Suspect]
     Active Substance: LEVOTHYROXINE\LIOTHYRONINE
     Indication: THYROID HORMONES DECREASED
     Dosage: ?          QUANTITY:1 TABLET(S);?
     Route: 048
     Dates: start: 20180514, end: 20180516

REACTIONS (1)
  - Insomnia [None]

NARRATIVE: CASE EVENT DATE: 20180515
